FAERS Safety Report 10476489 (Version 1)
Quarter: 2014Q3

REPORT INFORMATION
  Report Type: Spontaneous
  Country: US (occurrence: None)
  Receive Date: 20140923
  Receipt Date: 20140923
  Transmission Date: 20150326
  Serious: Yes (Hospitalization, Other)
  Sender: FDA-Public Use
  Company Number: 2014AMD00088

PATIENT
  Age: 5 Month
  Sex: Male

DRUGS (2)
  1. PYRIMETHAMINE [Suspect]
     Active Substance: PYRIMETHAMINE
     Indication: CHORIORETINITIS
     Dosage: TWICE
  2. PYRIMETHAMINE [Suspect]
     Active Substance: PYRIMETHAMINE
     Indication: CONGENITAL TOXOPLASMOSIS
     Dosage: TWICE

REACTIONS (5)
  - Irritability [None]
  - Product compounding quality issue [None]
  - Accidental overdose [None]
  - Toxicity to various agents [None]
  - Generalised tonic-clonic seizure [None]
